FAERS Safety Report 17587028 (Version 1)
Quarter: 2020Q1

REPORT INFORMATION
  Report Type: Spontaneous
  Country: US (occurrence: US)
  Receive Date: 20200326
  Receipt Date: 20200326
  Transmission Date: 20200409
  Serious: No
  Sender: FDA-Public Use
  Company Number: US-SA-2020SA075505

PATIENT
  Sex: Male

DRUGS (1)
  1. DUPIXENT [Suspect]
     Active Substance: DUPILUMAB
     Dosage: 300 MG
     Route: 058
     Dates: start: 202002

REACTIONS (5)
  - Headache [Unknown]
  - Irritability [Unknown]
  - Frustration tolerance decreased [Unknown]
  - Condition aggravated [Unknown]
  - Anger [Unknown]

NARRATIVE: CASE EVENT DATE: 2020
